FAERS Safety Report 19561611 (Version 2)
Quarter: 2021Q3

REPORT INFORMATION
  Report Type: Spontaneous
  Country: DE (occurrence: DE)
  Receive Date: 20210716
  Receipt Date: 20210724
  Transmission Date: 20211014
  Serious: Yes (Hospitalization, Other)
  Sender: FDA-Public Use
  Company Number: DE-ACCORD-231560

PATIENT
  Age: 39 Year
  Sex: Female
  Weight: 150 kg

DRUGS (1)
  1. LEVETIRACETAM. [Suspect]
     Active Substance: LEVETIRACETAM
     Indication: PARTIAL SEIZURES
     Route: 048

REACTIONS (3)
  - Coagulopathy [Recovered/Resolved]
  - Hepatotoxicity [Recovered/Resolved]
  - Drug-induced liver injury [Recovered/Resolved]
